FAERS Safety Report 9098106 (Version 2)
Quarter: 2013Q1

REPORT INFORMATION
  Report Type: Spontaneous
  Country: JP (occurrence: JP)
  Receive Date: 20130213
  Receipt Date: 20130222
  Transmission Date: 20140127
  Serious: Yes (Hospitalization)
  Sender: FDA-Public Use
  Company Number: JP-PFIZER INC-2013050052

PATIENT
  Age: 42 Year
  Sex: Female

DRUGS (6)
  1. AZITHROMYCIN [Suspect]
     Indication: COUGH
     Dosage: UNK
     Dates: start: 201205
  2. CLARITHROMYCIN [Suspect]
     Indication: COUGH
     Dosage: UNK
     Dates: start: 201205
  3. MINOMYCIN [Concomitant]
     Indication: COUGH
     Dosage: UNK
     Dates: start: 201205
  4. MONTELUKAST [Concomitant]
     Indication: COUGH
     Dosage: UNK
  5. BUDESONIDE/FORMOTEROL FUMARATE [Concomitant]
     Indication: COUGH
     Dosage: UNK
  6. LOXOPROFEN [Concomitant]
     Indication: PYREXIA
     Dosage: UNK

REACTIONS (1)
  - Eosinophilic pneumonia [Recovering/Resolving]
